FAERS Safety Report 11077256 (Version 1)
Quarter: 2015Q2

REPORT INFORMATION
  Report Type: Spontaneous
  Country: JP (occurrence: JP)
  Receive Date: 20150429
  Receipt Date: 20150429
  Transmission Date: 20150821
  Serious: Yes (Other)
  Sender: FDA-Public Use
  Company Number: PHBS2002JP02882

PATIENT
  Age: 77 Year
  Sex: Female

DRUGS (4)
  1. LIPITOR [Concomitant]
     Active Substance: ATORVASTATIN CALCIUM
     Dates: start: 20011002
  2. BUP-4 [Concomitant]
     Active Substance: PROPIVERINE
     Dates: start: 20020208
  3. NELBON [Concomitant]
     Active Substance: NITRAZEPAM
     Dates: start: 20011203, end: 20020228
  4. DIOVAN [Suspect]
     Active Substance: VALSARTAN
     Indication: HYPERTENSION
     Dosage: 80 MG/DAY
     Route: 048
     Dates: start: 20010210, end: 20020226

REACTIONS (2)
  - Angioedema [Unknown]
  - Angioedema [Recovered/Resolved]

NARRATIVE: CASE EVENT DATE: 20011222
